FAERS Safety Report 15061884 (Version 1)
Quarter: 2018Q2

REPORT INFORMATION
  Report Type: Spontaneous
  Country: HR (occurrence: HR)
  Receive Date: 20180625
  Receipt Date: 20180625
  Transmission Date: 20180711
  Serious: Yes (Death, Life-Threatening, Hospitalization, Other)
  Sender: FDA-Public Use
  Company Number: HR-MYLANLABS-2018M1043585

PATIENT
  Age: 73 Year
  Sex: Female

DRUGS (14)
  1. LORATADINE. [Suspect]
     Active Substance: LORATADINE
     Indication: ANTIALLERGIC THERAPY
     Dosage: UNK
  2. GENTAMICIN. [Suspect]
     Active Substance: GENTAMICIN
     Indication: ANTIBIOTIC THERAPY
     Dosage: UNK
     Route: 061
  3. LISINOPRIL. [Concomitant]
     Active Substance: LISINOPRIL
     Indication: CHRONIC KIDNEY DISEASE
  4. CIPROFLOXACIN. [Suspect]
     Active Substance: CIPROFLOXACIN
     Indication: ANTIBIOTIC THERAPY
     Dosage: 400 MG
     Route: 042
  5. FUROSEMIDE. [Interacting]
     Active Substance: FUROSEMIDE
     Indication: HYPERTENSION
  6. ACETYLSALICYLIC ACID [Concomitant]
     Active Substance: ASPIRIN
     Indication: CHRONIC KIDNEY DISEASE
     Dosage: UNK
  7. LISINOPRIL. [Concomitant]
     Active Substance: LISINOPRIL
     Indication: HYPERTENSION
     Dosage: UNK
     Route: 065
  8. CEFUROXIME AXETIL. [Interacting]
     Active Substance: CEFUROXIME AXETIL
     Indication: URINARY TRACT INFECTION
     Dosage: 500 MG TWICE DAILY
     Route: 048
  9. METHYLPREDNISOLONE. [Suspect]
     Active Substance: METHYLPREDNISOLONE
     Indication: STEROID THERAPY
     Dosage: 125 MG
     Route: 042
  10. FISH OIL [Suspect]
     Active Substance: FISH OIL
     Indication: TOXIC EPIDERMAL NECROLYSIS
     Dosage: UNK
  11. FUROSEMIDE. [Suspect]
     Active Substance: FUROSEMIDE
     Indication: CHRONIC KIDNEY DISEASE
     Dosage: UNK
     Route: 065
  12. CEFUROXIME AXETIL. [Interacting]
     Active Substance: CEFUROXIME AXETIL
     Indication: ESCHERICHIA URINARY TRACT INFECTION
  13. CALCIUM CARBONATE. [Concomitant]
     Active Substance: CALCIUM CARBONATE
     Indication: CHRONIC KIDNEY DISEASE
     Dosage: UNK
     Route: 065
  14. CALCIUM CARBONATE. [Concomitant]
     Active Substance: CALCIUM CARBONATE
     Indication: HYPERTENSION

REACTIONS (27)
  - Toxic epidermal necrolysis [Fatal]
  - Rash [Unknown]
  - Nikolsky^s sign [Unknown]
  - Gastrointestinal haemorrhage [Fatal]
  - Escherichia infection [Unknown]
  - Pruritus [Unknown]
  - Skin exfoliation [Unknown]
  - Skin disorder [Unknown]
  - Arthralgia [Unknown]
  - Multiple organ dysfunction syndrome [Fatal]
  - Granulocytopenia [Fatal]
  - Staphylococcal sepsis [Fatal]
  - Pyrexia [Unknown]
  - Staphylococcal infection [Unknown]
  - Malaise [Unknown]
  - Mouth ulceration [Unknown]
  - Death [Fatal]
  - Oesophagitis haemorrhagic [Unknown]
  - Skin lesion [Unknown]
  - Protein total decreased [Unknown]
  - Leukopenia [Not Recovered/Not Resolved]
  - Skin oedema [Unknown]
  - Keratitis [Unknown]
  - Drug interaction [Fatal]
  - Sepsis [Unknown]
  - Hypertension [Unknown]
  - Blister [Unknown]
